FAERS Safety Report 11090641 (Version 2)
Quarter: 2015Q2

REPORT INFORMATION
  Report Type: Report from Study
  Country: IT (occurrence: IT)
  Receive Date: 20150505
  Receipt Date: 20150507
  Transmission Date: 20150821
  Serious: Yes (Hospitalization)
  Sender: FDA-Public Use
  Company Number: PHHO2015IT007670

PATIENT
  Age: 45 Year

DRUGS (4)
  1. ZOLEDRONATE [Suspect]
     Active Substance: ZOLEDRONIC ACID
     Indication: BONE LOSS
     Dosage: 4 MG, UNK
     Route: 065
     Dates: start: 20091018
  2. CGS 20267 [Suspect]
     Active Substance: LETROZOLE
     Indication: BONE LOSS
     Dosage: 2.5 MG, QD
     Route: 048
     Dates: start: 20090903
  3. TRIPTORELIN [Suspect]
     Active Substance: TRIPTORELIN
     Indication: BONE LOSS
     Dosage: 1 Q, EVERY 28 DAYS
     Route: 030
     Dates: start: 20090921
  4. TAMOXIFEN [Suspect]
     Active Substance: TAMOXIFEN
     Indication: BONE LOSS
     Route: 065

REACTIONS (1)
  - Uveitis [Recovered/Resolved]

NARRATIVE: CASE EVENT DATE: 20091019
